FAERS Safety Report 5673269-3 (Version None)
Quarter: 2008Q1

REPORT INFORMATION
  Report Type: 
  Country: None (occurrence: None)
  Receive Date: 20080317
  Receipt Date: 20080304
  Transmission Date: 20080703
  Serious: Yes (Other)
  Sender: FDA-Public Use
  Company Number: DSM-2008-00258

PATIENT
  Age: 56 Year
  Sex: Male

DRUGS (1)
  1. OLMESARTAN MEDOXOMIL [Suspect]
     Indication: HYPERTENSION
     Dosage: 10 MG (10 MG, 1 IN 1 D), ORAL
     Route: 048
     Dates: start: 20080301, end: 20080301

REACTIONS (5)
  - BLADDER PAIN [None]
  - HAEMATURIA [None]
  - INFLUENZA LIKE ILLNESS [None]
  - PELVIC PAIN [None]
  - PYREXIA [None]
